FAERS Safety Report 21675316 (Version 1)
Quarter: 2022Q4

REPORT INFORMATION
  Report Type: Spontaneous
  Country: CN (occurrence: CN)
  Receive Date: 20221202
  Receipt Date: 20221202
  Transmission Date: 20230113
  Serious: Yes (Hospitalization)
  Sender: FDA-Public Use
  Company Number: CN-002147023-NVSC2022CN278495

PATIENT
  Age: 68 Year
  Sex: Male
  Weight: 52 kg

DRUGS (3)
  1. SACUBITRIL\VALSARTAN [Suspect]
     Active Substance: SACUBITRIL\VALSARTAN
     Indication: Cardiac failure
     Dosage: 50 MG, QD
     Route: 048
     Dates: start: 20221109, end: 20221110
  2. FUROSEMIDE [Concomitant]
     Active Substance: FUROSEMIDE
     Indication: Polyuria
     Dosage: 20 MG, QD
     Route: 042
     Dates: start: 20221102, end: 20221109
  3. MILRINONE [Concomitant]
     Active Substance: MILRINONE
     Indication: Cardiac failure
     Dosage: 30.1 MG, QD (PUMPED 1.4MG/H)
     Route: 065
     Dates: start: 20221109, end: 20221110

REACTIONS (4)
  - Dyspnoea [Recovering/Resolving]
  - Hypotension [Recovering/Resolving]
  - Dizziness [Recovering/Resolving]
  - Fatigue [Recovering/Resolving]

NARRATIVE: CASE EVENT DATE: 20221110
